FAERS Safety Report 22314465 (Version 1)
Quarter: 2023Q2

REPORT INFORMATION
  Report Type: Report from Study
  Country: IT (occurrence: IT)
  Receive Date: 20230512
  Receipt Date: 20230512
  Transmission Date: 20230721
  Serious: Yes (Other)
  Sender: FDA-Public Use
  Company Number: IT-GLAXOSMITHKLINE-IT2023EME065813

PATIENT

DRUGS (1)
  1. NIRAPARIB [Suspect]
     Active Substance: NIRAPARIB
     Indication: Ovarian cancer
     Dosage: 200 MG, QD
     Dates: start: 202208, end: 202210

REACTIONS (4)
  - Metastases to lung [Recovered/Resolved]
  - Metastases to pelvis [Recovered/Resolved]
  - Metastases to abdominal wall [Recovered/Resolved]
  - Ovarian cancer metastatic [Unknown]

NARRATIVE: CASE EVENT DATE: 20221001
